FAERS Safety Report 8758147 (Version 1)
Quarter: 2012Q4

REPORT INFORMATION
  Report Type: 
  Country: AT (occurrence: AT)
  Receive Date: 20120829
  Receipt Date: 20120829
  Transmission Date: 20130627
  Serious: Yes (Other)
  Sender: FDA-Public Use
  Company Number: AT-UCBSA-063986

PATIENT
  Age: 54 Year
  Sex: Male

DRUGS (4)
  1. VIMPAT [Suspect]
     Indication: EPILEPSY
     Dates: start: 201111, end: 201207
  2. KEPPRA [Concomitant]
     Dosage: 2X2000 DAILY
  3. NEUROTOP RETARD [Concomitant]
  4. FRISIUM [Concomitant]
     Dosage: 50-1

REACTIONS (2)
  - Gait disturbance [Recovered/Resolved]
  - Tremor [Recovered/Resolved]
